FAERS Safety Report 9281426 (Version 1)
Quarter: 2013Q2

REPORT INFORMATION
  Report Type: Report from Study
  Country: DE (occurrence: DE)
  Receive Date: 20130509
  Receipt Date: 20130509
  Transmission Date: 20140414
  Serious: Yes (Hospitalization)
  Sender: FDA-Public Use
  Company Number: DE-BAXTER-2013BAX016314

PATIENT
  Age: 79 Year
  Sex: Female
  Weight: 63.4 kg

DRUGS (26)
  1. ENDOXAN 1G [Suspect]
     Indication: B-CELL LYMPHOMA
     Route: 065
  2. NATRIUMCHLORID BAXTER [Suspect]
     Indication: DYSPNOEA
     Route: 065
     Dates: start: 20121219, end: 20121219
  3. NATRIUMCHLORID BAXTER [Suspect]
     Indication: FEELING HOT
  4. UROMITEXAN 400 MG [Suspect]
     Indication: PREMEDICATION
     Route: 065
     Dates: start: 20121219
  5. FLUCONAZOL REDIBAG 2 MG/ML INFUSIONSL?SUNG [Suspect]
     Indication: PREMEDICATION
     Route: 065
     Dates: start: 20121220
  6. RITUXIMAB [Suspect]
     Indication: B-CELL LYMPHOMA
     Route: 042
     Dates: start: 20121219
  7. RITUXIMAB [Suspect]
     Route: 042
     Dates: start: 20130221
  8. TORASEMIDE [Suspect]
     Indication: HYPERTONIA
     Route: 065
     Dates: start: 20121017
  9. DOXEPIN HYDROCHLORIDE [Suspect]
     Indication: PRODUCT USED FOR UNKNOWN INDICATION
     Route: 065
  10. CIPROFLOXACIN [Suspect]
     Indication: NEUTROPENIA
     Route: 065
     Dates: start: 20130102, end: 20130112
  11. SPIRONOLACTONE [Suspect]
     Indication: PRODUCT USED FOR UNKNOWN INDICATION
     Route: 065
     Dates: start: 20130117
  12. POTASSIUM BICARBONATE/POTASSIUM CITRATE [Suspect]
     Indication: HYPOKALAEMIA
     Route: 065
     Dates: start: 20130122
  13. PREDNISOLONE SODIUM SUCCINATE [Suspect]
     Indication: DYSPNOEA
     Route: 065
     Dates: start: 20121219, end: 20121219
  14. PREDNISOLONE SODIUM SUCCINATE [Suspect]
     Indication: FEELING HOT
  15. DIMETINDENE MALEATE [Suspect]
     Indication: DYSPNOEA
     Route: 065
     Dates: start: 20121219, end: 20121219
  16. DIMETINDENE MALEATE [Suspect]
     Indication: FEELING HOT
  17. METOCLOPRAMIDE/METOCLOPRAMIDE HYDROCHLORIDE [Suspect]
     Indication: PREMEDICATION
     Route: 065
     Dates: start: 20121219
  18. DEXAMETHASONE [Suspect]
     Indication: PREMEDICATION
     Route: 065
     Dates: start: 20121220
  19. ALLOPURINOL [Suspect]
     Indication: PREMEDICATION
     Route: 065
     Dates: start: 20121220
  20. RANITIDINE [Suspect]
     Indication: PREMEDICATION
     Route: 065
     Dates: start: 20121219
  21. PARACETAMOL [Suspect]
     Indication: PREMEDICATION
     Route: 065
     Dates: start: 20121219
  22. PREDNISOLONE [Suspect]
     Indication: PROPHYLAXIS
     Route: 065
     Dates: start: 20130110
  23. VINCRISTINE [Suspect]
     Indication: B-CELL LYMPHOMA
     Route: 065
  24. PREDNISONE [Suspect]
     Indication: B-CELL LYMPHOMA
     Route: 065
  25. GRANISETRON HYDROCHLORIDE [Suspect]
     Indication: PREMEDICATION
     Route: 065
     Dates: start: 20121219
  26. LACTULOSE [Concomitant]
     Indication: PRODUCT USED FOR UNKNOWN INDICATION
     Route: 065

REACTIONS (1)
  - Constipation [Recovered/Resolved]
